FAERS Safety Report 11192056 (Version 1)
Quarter: 2015Q2

REPORT INFORMATION
  Report Type: Spontaneous
  Country: US (occurrence: US)
  Receive Date: 20150616
  Receipt Date: 20150616
  Transmission Date: 20150821
  Serious: Yes (Hospitalization)
  Sender: FDA-Public Use
  Company Number: US-PFIZER INC-2015196910

PATIENT
  Age: 38 Year
  Sex: Female

DRUGS (4)
  1. KALBITOR [Suspect]
     Active Substance: ECALLANTIDE
     Dosage: 30 MG, 1X/DAY
     Route: 058
     Dates: start: 20150522, end: 20150522
  2. LYRICA [Suspect]
     Active Substance: PREGABALIN
     Dosage: UNK
  3. KALBITOR [Suspect]
     Active Substance: ECALLANTIDE
     Dosage: 30 MG, 2X/DAY
     Route: 058
     Dates: start: 20150506, end: 20150506
  4. KALBITOR [Suspect]
     Active Substance: ECALLANTIDE
     Indication: HEREDITARY ANGIOEDEMA
     Dosage: 30 MG, AS NEEDED
     Route: 058

REACTIONS (4)
  - Speech disorder [Unknown]
  - Foot deformity [Unknown]
  - Hereditary angioedema [Unknown]
  - Dysphonia [Unknown]

NARRATIVE: CASE EVENT DATE: 20150506
